FAERS Safety Report 19064239 (Version 2)
Quarter: 2021Q2

REPORT INFORMATION
  Report Type: Spontaneous
  Country: US (occurrence: US)
  Receive Date: 20210326
  Receipt Date: 20210426
  Transmission Date: 20210717
  Serious: Yes (Other)
  Sender: FDA-Public Use
  Company Number: US-PFIZER INC-2021218964

PATIENT
  Age: 44 Year
  Sex: Male
  Weight: 97.51 kg

DRUGS (2)
  1. VERAPAMIL HCL [Suspect]
     Active Substance: VERAPAMIL HYDROCHLORIDE
     Dosage: UNK
  2. NOVOLOG [Concomitant]
     Active Substance: INSULIN ASPART
     Dosage: 15 IU, 1X/DAY

REACTIONS (4)
  - Blood glucose decreased [Unknown]
  - Seizure [Unknown]
  - Dysphagia [Unknown]
  - Soft tissue injury [Unknown]
